FAERS Safety Report 10386091 (Version 1)
Quarter: 2014Q3

REPORT INFORMATION
  Report Type: Report from Study
  Country: US (occurrence: US)
  Receive Date: 20140814
  Receipt Date: 20140814
  Transmission Date: 20150326
  Serious: No
  Sender: FDA-Public Use
  Company Number: US-ALEXION-A200700278

PATIENT

DRUGS (26)
  1. BLINDED ASFOTASE ALFA [Suspect]
     Active Substance: ASFOTASE ALFA
  2. BLINDED TT30 (ALXN1103 FORMULATION) [Suspect]
     Active Substance: INVESTIGATIONAL PRODUCT
  3. BLINDED ALXN1101 [Suspect]
     Active Substance: INVESTIGATIONAL PRODUCT
  4. BLINDED ECULIZUMAB [Suspect]
     Active Substance: ECULIZUMAB
  5. PLACEBO [Suspect]
     Active Substance: UNSPECIFIED INGREDIENT
  6. BLINDED STANDARD OF CARE [Suspect]
     Active Substance: UNSPECIFIED INGREDIENT
  7. BLINDED ASFOTASE ALFA [Suspect]
     Active Substance: ASFOTASE ALFA
  8. BLINDED ECULIZUMAB [Suspect]
     Active Substance: ECULIZUMAB
  9. BLINDED ENB-0040 [Suspect]
     Active Substance: ASFOTASE ALFA
  10. BLINDED ENB-0040 [Suspect]
     Active Substance: ASFOTASE ALFA
  11. PLACEBO [Suspect]
     Active Substance: UNSPECIFIED INGREDIENT
  12. BLINDED ECULIZUMAB [Suspect]
     Active Substance: ECULIZUMAB
  13. BLINDED TT30 (ALXN1102 FORMULATION) [Suspect]
     Active Substance: INVESTIGATIONAL PRODUCT
  14. BLINDED ECULIZUMAB [Suspect]
     Active Substance: ECULIZUMAB
  15. BLINDED ENB-0040 [Suspect]
     Active Substance: ASFOTASE ALFA
  16. SOLIRIS [Suspect]
     Active Substance: ECULIZUMAB
  17. DANAZOL. [Concomitant]
     Active Substance: DANAZOL
     Dosage: UNK
     Route: 065
  18. BLINDED ALXN1007 [Suspect]
     Active Substance: INVESTIGATIONAL PRODUCT
  19. BLINDED ALXN6000 [Suspect]
     Active Substance: SAMALIZUMAB
  20. BLINDED ASFOTASE ALFA [Suspect]
     Active Substance: ASFOTASE ALFA
  21. BLINDED E. COLI DERIVED CPMP [Suspect]
     Active Substance: INVESTIGATIONAL PRODUCT
  22. BLINDED ECULIZUMAB [Suspect]
     Active Substance: ECULIZUMAB
  23. BLINDED ENB-0040 [Suspect]
     Active Substance: ASFOTASE ALFA
  24. BLINDED ENB-0040 [Suspect]
     Active Substance: ASFOTASE ALFA
  25. BLINDED ALXN1007-APS-201 [Suspect]
     Active Substance: INVESTIGATIONAL PRODUCT
  26. BLINDED ASFOTASE ALFA [Suspect]
     Active Substance: ASFOTASE ALFA

REACTIONS (1)
  - Dyspepsia [Unknown]
